FAERS Safety Report 10623397 (Version 1)
Quarter: 2014Q4

REPORT INFORMATION
  Report Type: Spontaneous
  Country: US (occurrence: US)
  Receive Date: 20141203
  Receipt Date: 20141203
  Transmission Date: 20150529
  Serious: Yes (Hospitalization)
  Sender: FDA-Public Use
  Company Number: US-BAYER-2014-173359

PATIENT
  Age: 76 Year
  Sex: Male
  Weight: 108 kg

DRUGS (12)
  1. PRAVASTATIN [Concomitant]
     Active Substance: PRAVASTATIN\PRAVASTATIN SODIUM
     Dosage: 20 MG, QD
     Route: 048
  2. OMEPRAZOLE. [Concomitant]
     Active Substance: OMEPRAZOLE
     Dosage: 20 MG, QD
     Route: 048
  3. GABAPENTIN. [Concomitant]
     Active Substance: GABAPENTIN
     Dosage: 400 MG, QID
     Route: 048
  4. WARFARIN [Concomitant]
     Active Substance: WARFARIN
     Dosage: 7 MG, QHS OR AS DIRECTED
  5. SERTRALINE [Concomitant]
     Active Substance: SERTRALINE HYDROCHLORIDE
     Dosage: 150 MG, QD
     Route: 048
  6. METOCLOPRAMIDE. [Concomitant]
     Active Substance: METOCLOPRAMIDE
     Dosage: 5 MG, QID
     Route: 048
  7. BAYER LOW DOSE [Suspect]
     Active Substance: ASPIRIN
     Dosage: 81 MG, QD
     Route: 048
  8. LEVOTHYROXINE [Concomitant]
     Active Substance: LEVOTHYROXINE
     Dosage: 150 ?G, QD
     Route: 048
  9. TYLENOL ARTHRITIS PAIN [Concomitant]
     Active Substance: ACETAMINOPHEN
     Dosage: 2 DF, BID
     Route: 048
  10. DIGOXIN. [Concomitant]
     Active Substance: DIGOXIN
     Dosage: 125 ?G, QD
     Route: 048
  11. TRAMADOL [Concomitant]
     Active Substance: TRAMADOL
     Dosage: 100 MG, TID PRN
  12. SUTENT [Concomitant]
     Active Substance: SUNITINIB MALATE
     Dosage: 50 MG, DAILY (4 WEEKS ON WITH 2 WEEKS OFF)

REACTIONS (16)
  - Dysphagia [None]
  - Heart rate increased [None]
  - Tumour invasion [None]
  - Orthostatic hypotension [Recovered/Resolved]
  - Renal cancer metastatic [None]
  - Depression [None]
  - Pain [None]
  - Fall [None]
  - Weight decreased [None]
  - Decreased appetite [None]
  - Seizure [None]
  - Hypothyroidism [None]
  - Anaemia [None]
  - Peripheral swelling [None]
  - Injury [None]
  - Prostatomegaly [None]

NARRATIVE: CASE EVENT DATE: 20140808
